FAERS Safety Report 8001408-8 (Version None)
Quarter: 2011Q4

REPORT INFORMATION
  Report Type: 
  Country: None (occurrence: None)
  Receive Date: 20111123
  Receipt Date: 20110913
  Transmission Date: 20120403
  Serious: No
  Sender: FDA-Public Use
  Company Number: 336528

PATIENT
  Sex: Female

DRUGS (2)
  1. VICTOZA [Suspect]
     Indication: PRODUCT USED FOR UNKNOWN INDICATION
     Dosage: , SUBCUTANEOUS
     Route: 058
  2. GLUCOPHAGE [Concomitant]

REACTIONS (6)
  - NAUSEA [None]
  - TREMOR [None]
  - HYPERHIDROSIS [None]
  - FATIGUE [None]
  - BLOOD GLUCOSE DECREASED [None]
  - DISORIENTATION [None]
